FAERS Safety Report 9664892 (Version 1)
Quarter: 2013Q4

REPORT INFORMATION
  Report Type: Spontaneous
  Country: FR (occurrence: FR)
  Receive Date: 20131101
  Receipt Date: 20131101
  Transmission Date: 20140711
  Serious: Yes (Other)
  Sender: FDA-Public Use
  Company Number: FR-GLAXOSMITHKLINE-B0936318A

PATIENT
  Sex: Male

DRUGS (12)
  1. REQUIP [Suspect]
     Indication: PARKINSON^S DISEASE
     Route: 048
     Dates: start: 200511, end: 2008
  2. REQUIP LP [Suspect]
     Indication: PARKINSON^S DISEASE
     Route: 048
     Dates: start: 2008
  3. SINEMET [Suspect]
     Indication: PARKINSON^S DISEASE
     Route: 048
     Dates: start: 200303
  4. SINEMET [Suspect]
     Indication: PARKINSON^S DISEASE
     Route: 048
     Dates: start: 200006
  5. PERGOLIDE [Suspect]
     Indication: PARKINSONIAN REST TREMOR
     Route: 048
     Dates: start: 200111, end: 2005
  6. ARTANE [Concomitant]
     Indication: PARKINSONIAN REST TREMOR
     Route: 048
     Dates: start: 19920616
  7. ARTANE [Concomitant]
     Indication: PARKINSONIAN REST TREMOR
     Route: 048
     Dates: start: 19920630
  8. MANTADIX [Concomitant]
     Indication: PARKINSON^S DISEASE
     Route: 048
     Dates: start: 2005
  9. OMEGA 3 [Concomitant]
     Route: 065
  10. ZOLOFT [Concomitant]
     Route: 048
     Dates: start: 2003, end: 2003
  11. RIVOTRIL [Concomitant]
     Route: 048
     Dates: start: 2008
  12. MOTILIUM [Concomitant]
     Route: 048
     Dates: start: 2008

REACTIONS (9)
  - Pathological gambling [Unknown]
  - Hypersexuality [Unknown]
  - Dopamine dysregulation syndrome [Unknown]
  - Abnormal behaviour [Unknown]
  - Obsessive-compulsive disorder [Unknown]
  - Psychomotor hyperactivity [Unknown]
  - On and off phenomenon [Unknown]
  - Akinesia [Unknown]
  - Dyskinesia [Unknown]
